FAERS Safety Report 11450564 (Version 1)
Quarter: 2015Q3

REPORT INFORMATION
  Report Type: Spontaneous
  Country: US (occurrence: US)
  Receive Date: 20150903
  Receipt Date: 20150903
  Transmission Date: 20151125
  Serious: No
  Sender: FDA-Public Use
  Company Number: US-ROCHE-1064607

PATIENT
  Sex: Female

DRUGS (3)
  1. RIBASPHERE [Suspect]
     Active Substance: RIBAVIRIN
     Indication: PRODUCT USED FOR UNKNOWN INDICATION
     Dosage: DIVIDED DOSE
     Route: 048
     Dates: start: 20111118
  2. RIBASPHERE [Suspect]
     Active Substance: RIBAVIRIN
     Route: 048
  3. PEGASYS [Suspect]
     Active Substance: PEGINTERFERON ALFA-2A
     Indication: CHRONIC HEPATITIS C
     Route: 058
     Dates: start: 20111118

REACTIONS (9)
  - Migraine [Unknown]
  - Arthralgia [Unknown]
  - Bone pain [Unknown]
  - Injection site reaction [Unknown]
  - Abdominal pain [Unknown]
  - Photosensitivity reaction [Unknown]
  - Full blood count decreased [Unknown]
  - Alopecia [Unknown]
  - Nausea [Unknown]
